FAERS Safety Report 10687780 (Version 4)
Quarter: 2015Q3

REPORT INFORMATION
  Report Type: Spontaneous
  Country: US (occurrence: US)
  Receive Date: 20150102
  Receipt Date: 20150708
  Transmission Date: 20151125
  Serious: Yes (Hospitalization)
  Sender: FDA-Public Use
  Company Number: US-BAYER-2014-191315

PATIENT
  Age: 32 Year
  Sex: Female
  Weight: 74.83 kg

DRUGS (4)
  1. DILAUDID [Concomitant]
     Active Substance: HYDROMORPHONE HYDROCHLORIDE
  2. MIRENA [Suspect]
     Active Substance: LEVONORGESTREL
     Indication: CONTRACEPTION
     Dosage: 20 MCG/24HR, CONT
     Route: 015
     Dates: start: 20070701, end: 20090501
  3. MOTRIN [Concomitant]
     Active Substance: IBUPROFEN
  4. MORPHINE [Concomitant]
     Active Substance: MORPHINE
     Indication: PAIN

REACTIONS (5)
  - Uterine perforation [None]
  - Off label use of device [None]
  - Injury [None]
  - Embedded device [None]
  - Abdominal pain [None]

NARRATIVE: CASE EVENT DATE: 200904
